FAERS Safety Report 5875325-3 (Version None)
Quarter: 2008Q3

REPORT INFORMATION
  Report Type: 
  Country: None (occurrence: None)
  Receive Date: 20080904
  Receipt Date: 20080827
  Transmission Date: 20090109
  Serious: Yes (Death)
  Sender: FDA-Public Use
  Company Number: 2008JP003889

PATIENT
  Age: 73 Year
  Sex: Female
  Weight: 50 kg

DRUGS (5)
  1. VESICARE [Suspect]
     Dosage: 5MG, UID/QD, ORAL
     Route: 048
     Dates: start: 20070209, end: 20080723
  2. HYPOCA(BARNIDIPINE) FORMULATION UNKNOWN, UNKNOWN [Suspect]
     Indication: HYPERTENSION
     Dosage: ORAL
     Route: 048
  3. SPIROPENT (CLENBUTEROL HYDROCHLORIDE) [Concomitant]
  4. MOBIC [Concomitant]
  5. ISALON (ALDIOXA) [Concomitant]

REACTIONS (1)
  - DRY MOUTH [None]
